FAERS Safety Report 18377692 (Version 1)
Quarter: 2020Q4

REPORT INFORMATION
  Report Type: Spontaneous
  Country: US (occurrence: US)
  Receive Date: 20201013
  Receipt Date: 20201013
  Transmission Date: 20210114
  Serious: Yes (Other)
  Sender: FDA-Public Use
  Company Number: US-PFIZER INC-2020393296

PATIENT
  Age: 65 Year
  Sex: Female

DRUGS (1)
  1. PREMPRO [Suspect]
     Active Substance: ESTROGENS, CONJUGATED\MEDROXYPROGESTERONE ACETATE
     Indication: HOT FLUSH
     Dosage: UNK

REACTIONS (4)
  - Blood cholesterol increased [Unknown]
  - Suicidal ideation [Unknown]
  - Bone pain [Unknown]
  - Weight decreased [Unknown]
